FAERS Safety Report 11266198 (Version 1)
Quarter: 2015Q3

REPORT INFORMATION
  Report Type: Spontaneous
  Country: US (occurrence: None)
  Receive Date: 20150713
  Receipt Date: 20150713
  Transmission Date: 20151125
  Serious: Yes (Hospitalization)
  Sender: FDA-Public Use
  Company Number: None

PATIENT
  Age: 22 Year
  Sex: Female
  Weight: 53.07 kg

DRUGS (1)
  1. KINEVAC [Suspect]
     Active Substance: SINCALIDE
     Indication: HEPATOBILIARY SCAN
     Dosage: 1.1 MCG, 1 W, INFUSION
     Dates: start: 20150630

REACTIONS (6)
  - Nausea [None]
  - Pyrexia [None]
  - Chills [None]
  - Pelvic fluid collection [None]
  - Post procedural complication [None]
  - Laboratory test interference [None]

NARRATIVE: CASE EVENT DATE: 20150630
